FAERS Safety Report 5028978-6 (Version None)
Quarter: 2006Q2

REPORT INFORMATION
  Report Type: 
  Country: None (occurrence: None)
  Receive Date: 20060619
  Receipt Date: 20060519
  Transmission Date: 20061013
  Serious: Yes (Hospitalization)
  Sender: FDA-Public Use
  Company Number: FR-SANOFI-SYNTHELABO-A02200601341

PATIENT
  Sex: Male
  Weight: 66 kg

DRUGS (9)
  1. ABILIFY [Concomitant]
     Indication: SCHIZOPHRENIA
     Route: 048
  2. TEMESTA [Concomitant]
     Indication: DRUG USE FOR UNKNOWN INDICATION
     Route: 048
  3. SOLIAN [Concomitant]
     Indication: DRUG USE FOR UNKNOWN INDICATION
     Route: 048
  4. STILNOX [Concomitant]
     Indication: DRUG USE FOR UNKNOWN INDICATION
     Route: 048
  5. LEPTICUR [Concomitant]
     Indication: DRUG USE FOR UNKNOWN INDICATION
     Route: 065
  6. DEPAMIDE [Concomitant]
     Indication: DRUG USE FOR UNKNOWN INDICATION
     Route: 048
  7. CALCIUM LEVOFOLINATE [Concomitant]
     Indication: COLON CANCER
     Route: 042
     Dates: start: 20060419, end: 20060419
  8. FLUOROURACIL [Concomitant]
     Indication: COLON CANCER
     Route: 042
     Dates: start: 20060419, end: 20060419
  9. ELOXATIN [Suspect]
     Indication: COLON CANCER
     Route: 042
     Dates: start: 20060419, end: 20060419

REACTIONS (14)
  - ACUTE PRERENAL FAILURE [None]
  - ANOREXIA [None]
  - DEHYDRATION [None]
  - DEPRESSED LEVEL OF CONSCIOUSNESS [None]
  - DIARRHOEA [None]
  - DISSEMINATED INTRAVASCULAR COAGULATION [None]
  - HAEMODILUTION [None]
  - HYPONATRAEMIA [None]
  - PLEURISY [None]
  - RASH MACULAR [None]
  - SEPSIS [None]
  - SHOCK [None]
  - SKIN EXFOLIATION [None]
  - VOMITING [None]
